FAERS Safety Report 7727254-8 (Version None)
Quarter: 2011Q3

REPORT INFORMATION
  Report Type: 
  Country: None (occurrence: None)
  Receive Date: 20110902
  Receipt Date: 20110826
  Transmission Date: 20111222
  Serious: No
  Sender: FDA-Public Use
  Company Number: DE-B.I. PHARMACEUTICALS,INC./RIDGEFIELD-2010-DE-06378DE

PATIENT
  Sex: Male
  Weight: 114 kg

DRUGS (3)
  1. DABIGATRAN [Suspect]
     Indication: HIP ARTHROPLASTY
  2. DABIGATRAN [Suspect]
     Indication: KNEE ARTHROPLASTY
  3. DABIGATRAN [Suspect]
     Indication: THROMBOSIS PROPHYLAXIS
     Dates: end: 20100622

REACTIONS (1)
  - THROMBOSIS [None]
